FAERS Safety Report 6847261-7 (Version None)
Quarter: 2010Q2

REPORT INFORMATION
  Report Type: 
  Country: None (occurrence: None)
  Receive Date: 20100629
  Receipt Date: 20100428
  Transmission Date: 20101027
  Serious: No
  Sender: FDA-Public Use
  Company Number: US-WYE-H14873310

PATIENT
  Sex: Female

DRUGS (2)
  1. PRISTIQ [Suspect]
  2. EFFEXOR [Suspect]

REACTIONS (3)
  - NAUSEA [None]
  - PAIN [None]
  - PARAESTHESIA [None]
